FAERS Safety Report 8312881-X (Version None)
Quarter: 2012Q2

REPORT INFORMATION
  Report Type: 
  Country: None (occurrence: None)
  Receive Date: 20120426
  Receipt Date: 20120423
  Transmission Date: 20120825
  Serious: No
  Sender: FDA-Public Use
  Company Number: US-PFIZER INC-2012100455

PATIENT
  Sex: Female

DRUGS (2)
  1. TOVIAZ [Suspect]
     Indication: URINARY TRACT INFECTION
  2. TOVIAZ [Suspect]
     Indication: HYPERTONIC BLADDER
     Dosage: 4 MG, 1X/DAY
     Route: 048
     Dates: start: 20110101

REACTIONS (1)
  - DRY MOUTH [None]
